FAERS Safety Report 9167955 (Version 1)
Quarter: 2013Q1

REPORT INFORMATION
  Report Type: Spontaneous
  Country: PL (occurrence: None)
  Receive Date: 20130304
  Receipt Date: 20130304
  Transmission Date: 20140127
  Serious: Yes (Hospitalization)
  Sender: FDA-Public Use
  Company Number: 0220438

PATIENT
  Age: 60 Year
  Sex: Male

DRUGS (1)
  1. TACHOSIL [Suspect]
     Dosage: UNK (2 DOSAGE FORMS, TACHOSIL 9, 5X4, 8)

REACTIONS (3)
  - Hepatic haemorrhage [None]
  - Drug ineffective [None]
  - Product adhesion issue [None]
